FAERS Safety Report 22632608 (Version 1)
Quarter: 2023Q2

REPORT INFORMATION
  Report Type: Spontaneous
  Country: MX (occurrence: MX)
  Receive Date: 20230623
  Receipt Date: 20230623
  Transmission Date: 20230722
  Serious: Yes (Hospitalization, Other)
  Sender: FDA-Public Use
  Company Number: MX-NOVOPROD-1078440

PATIENT
  Age: 20 Year
  Sex: Male
  Weight: 79 kg

DRUGS (2)
  1. NOVOEIGHT [Suspect]
     Active Substance: ANTIHEMOPHILIC FACTOR, HUMAN RECOMBINANT
     Indication: Prophylaxis
  2. NOVOEIGHT [Suspect]
     Active Substance: ANTIHEMOPHILIC FACTOR, HUMAN RECOMBINANT
     Indication: Haemophilia
     Dosage: 3000 IU, DOSE FREQUENCY:  DAY YES AND ONE DAY NO
     Route: 042
     Dates: start: 2019

REACTIONS (9)
  - Fall [Recovering/Resolving]
  - Joint swelling [Recovering/Resolving]
  - Fall [Unknown]
  - Head injury [Unknown]
  - Skin haemorrhage [Unknown]
  - Haemophilic pseudotumour [Unknown]
  - Chest pain [Unknown]
  - Pallor [Unknown]
  - Hypertension [Unknown]

NARRATIVE: CASE EVENT DATE: 20230607
